FAERS Safety Report 12365061 (Version 4)
Quarter: 2016Q3

REPORT INFORMATION
  Report Type: Spontaneous
  Country: US (occurrence: US)
  Receive Date: 20160512
  Receipt Date: 20160829
  Transmission Date: 20161109
  Serious: Yes (Death, Hospitalization)
  Sender: FDA-Public Use
  Company Number: US-RELYPSA-RLY2016000618

PATIENT
  Sex: Female

DRUGS (12)
  1. METFORMIN HCL [Concomitant]
     Active Substance: METFORMIN HYDROCHLORIDE
  2. CLOPIDOGREL BISULFATE. [Concomitant]
     Active Substance: CLOPIDOGREL BISULFATE
  3. EPIVIR HBV [Concomitant]
     Active Substance: LAMIVUDINE
  4. SERTRALINE HCL [Concomitant]
     Active Substance: SERTRALINE HYDROCHLORIDE
  5. SIMVASTATIN. [Concomitant]
     Active Substance: SIMVASTATIN
  6. GABAPENTIN. [Concomitant]
     Active Substance: GABAPENTIN
  7. SODIUM BICARBONATE. [Concomitant]
     Active Substance: SODIUM BICARBONATE
  8. GLIPIZIDE. [Concomitant]
     Active Substance: GLIPIZIDE
  9. LISINOPRIL. [Concomitant]
     Active Substance: LISINOPRIL
  10. TAMSULOSIN HCL [Concomitant]
     Active Substance: TAMSULOSIN
  11. AMLODIPINE BESYLATE. [Concomitant]
     Active Substance: AMLODIPINE BESYLATE
  12. VELTASSA [Suspect]
     Active Substance: PATIROMER
     Indication: HYPERKALAEMIA
     Dosage: 8.4 G, QD
     Route: 065
     Dates: start: 20160303

REACTIONS (6)
  - Leg amputation [Unknown]
  - Ulcer [Unknown]
  - Respiratory disorder [Fatal]
  - Cardiac disorder [Fatal]
  - Renal disorder [Fatal]
  - Finger amputation [Unknown]

NARRATIVE: CASE EVENT DATE: 2016
